FAERS Safety Report 10021237 (Version 2)
Quarter: 2014Q2

REPORT INFORMATION
  Report Type: Spontaneous
  Country: US (occurrence: US)
  Receive Date: 20140319
  Receipt Date: 20140416
  Transmission Date: 20141212
  Serious: Yes (Hospitalization, Other)
  Sender: FDA-Public Use
  Company Number: US-ELI_LILLY_AND_COMPANY-US201403004811

PATIENT
  Age: 33 Year
  Sex: Female

DRUGS (2)
  1. FLUOXETINE HYDROCHLORIDE [Suspect]
     Indication: OBSESSIVE-COMPULSIVE DISORDER
     Dosage: 40 MG, QD
     Route: 065
  2. NIMODIPINE [Suspect]
     Indication: HYPERTENSION
     Dosage: 60 MG, EVERY 4 HRS
     Route: 048

REACTIONS (6)
  - Cerebral vasoconstriction [Recovered/Resolved]
  - Hypertension [Recovered/Resolved]
  - Drug hypersensitivity [Unknown]
  - Maternal exposure during pregnancy [Recovered/Resolved]
  - Anxiety [Unknown]
  - Insomnia [Unknown]
